FAERS Safety Report 4834930-3 (Version None)
Quarter: 2005Q4

REPORT INFORMATION
  Report Type: 
  Country: None (occurrence: None)
  Receive Date: 20051122
  Receipt Date: 20051117
  Transmission Date: 20060501
  Serious: Yes (Other)
  Sender: FDA-Public Use
  Company Number: US-BRISTOL-MYERS SQUIBB COMPANY-13185210

PATIENT
  Sex: Male
  Weight: 68 kg

DRUGS (3)
  1. SINEMET [Suspect]
     Indication: PARKINSONISM
     Route: 048
  2. ZOLOFT [Concomitant]
  3. ARICEPT [Concomitant]

REACTIONS (5)
  - AGITATION [None]
  - COGNITIVE DETERIORATION [None]
  - CONFUSIONAL STATE [None]
  - PERSONALITY CHANGE [None]
  - VERBAL ABUSE [None]
